FAERS Safety Report 11532940 (Version 1)
Quarter: 2015Q3

REPORT INFORMATION
  Report Type: Spontaneous
  Country: KR (occurrence: KR)
  Receive Date: 20150921
  Receipt Date: 20150921
  Transmission Date: 20151125
  Serious: Yes (Other)
  Sender: FDA-Public Use
  Company Number: KR-UCBSA-2015029699

PATIENT
  Age: 57 Year
  Sex: Male

DRUGS (3)
  1. RANITIDINE [Concomitant]
     Active Substance: RANITIDINE\RANITIDINE HYDROCHLORIDE
     Indication: PRODUCT USED FOR UNKNOWN INDICATION
     Dosage: UNK
     Dates: start: 20140813, end: 20140813
  2. KEPPRA [Suspect]
     Active Substance: LEVETIRACETAM
     Indication: PRODUCT USED FOR UNKNOWN INDICATION
     Dosage: UNK
     Dates: start: 20140813, end: 20140813
  3. CEFOTIAM [Suspect]
     Active Substance: CEFOTIAM
     Indication: BRAIN NEOPLASM MALIGNANT
     Dosage: UNK UNK, ONCE DAILY (QD)
     Dates: start: 20140813, end: 20140813

REACTIONS (2)
  - Anaemia [Recovered/Resolved]
  - Hypotension [Recovered/Resolved]

NARRATIVE: CASE EVENT DATE: 20140813
